FAERS Safety Report 4588526-1 (Version None)
Quarter: 2005Q1

REPORT INFORMATION
  Report Type: 
  Country: None (occurrence: None)
  Receive Date: 20050222
  Receipt Date: 20050210
  Transmission Date: 20050727
  Serious: Yes (Hospitalization)
  Sender: FDA-Public Use
  Company Number: 200510498JP

PATIENT
  Age: 90 Year
  Sex: Male

DRUGS (3)
  1. KETEK [Suspect]
     Indication: PNEUMONIA
     Route: 048
     Dates: start: 20050207, end: 20050209
  2. BROCIN [Concomitant]
     Indication: NASOPHARYNGITIS
     Route: 048
     Dates: start: 20050207, end: 20050209
  3. SENEGA [Concomitant]
     Indication: NASOPHARYNGITIS
     Route: 048
     Dates: start: 20050207, end: 20050209

REACTIONS (4)
  - DYSSTASIA [None]
  - MEDICATION ERROR [None]
  - MYOSITIS [None]
  - PAIN IN EXTREMITY [None]
